FAERS Safety Report 11815559 (Version 1)
Quarter: 2015Q4

REPORT INFORMATION
  Report Type: Spontaneous
  Country: PT (occurrence: PT)
  Receive Date: 20151209
  Receipt Date: 20151209
  Transmission Date: 20160305
  Serious: Yes (Hospitalization, Other)
  Sender: FDA-Public Use
  Company Number: PT-ELI_LILLY_AND_COMPANY-PT201512002606

PATIENT
  Age: 65 Year
  Sex: Female

DRUGS (4)
  1. GEMCITABINE HYDROCHLORIDE. [Suspect]
     Active Substance: GEMCITABINE HYDROCHLORIDE
     Indication: OVARIAN CANCER
     Route: 065
  2. PACLITAXEL. [Suspect]
     Active Substance: PACLITAXEL
     Route: 065
  3. NON-PEGYLATED LIPOSOMAL DOXORUBICIN HYDROCHL [Suspect]
     Active Substance: DOXORUBICIN
     Indication: OVARIAN CANCER
     Route: 065
  4. TRABECTEDIN [Concomitant]
     Active Substance: TRABECTEDIN
     Indication: OVARIAN CANCER
     Route: 065

REACTIONS (4)
  - Haematotoxicity [Unknown]
  - Malignant neoplasm progression [Unknown]
  - Gastrointestinal toxicity [Unknown]
  - Ovarian cancer [None]
